FAERS Safety Report 9257687 (Version 1)
Quarter: 2013Q2

REPORT INFORMATION
  Report Type: Spontaneous
  Country: JP (occurrence: JP)
  Receive Date: 20130426
  Receipt Date: 20130426
  Transmission Date: 20140414
  Serious: Yes (Other)
  Sender: FDA-Public Use
  Company Number: JP-ASTELLAS-2013JP005408

PATIENT
  Age: 74 Year
  Sex: Male

DRUGS (2)
  1. BETANIS [Suspect]
     Indication: HYPERTONIC BLADDER
     Dosage: 50 MG, BID
     Route: 048
     Dates: start: 201304
  2. BETANIS [Suspect]
     Dosage: UNK
     Route: 048

REACTIONS (4)
  - Intentional drug misuse [Unknown]
  - Blood creatinine increased [Unknown]
  - Blood urea increased [Unknown]
  - Blood pressure increased [Unknown]
